FAERS Safety Report 8961576 (Version 1)
Quarter: 2012Q4

REPORT INFORMATION
  Report Type: 
  Country: US (occurrence: US)
  Receive Date: 20121213
  Receipt Date: 20121213
  Transmission Date: 20130627
  Serious: Yes (Other)
  Sender: FDA-Public Use
  Company Number: US-BAYER-2012-129214

PATIENT
  Age: 15 Year
  Sex: Female

DRUGS (2)
  1. YAZ [Suspect]
  2. GIANVI [Suspect]

REACTIONS (1)
  - Deep vein thrombosis [None]
